FAERS Safety Report 5205007-2 (Version None)
Quarter: 2007Q1

REPORT INFORMATION
  Report Type: 
  Country: None (occurrence: None)
  Receive Date: 20070110
  Receipt Date: 20060928
  Transmission Date: 20070707
  Serious: No
  Sender: FDA-Public Use
  Company Number: US-BRISTOL-MYERS SQUIBB COMPANY-13525126

PATIENT
  Age: 57 Year
  Sex: Female
  Weight: 78 kg

DRUGS (13)
  1. ABILIFY [Suspect]
     Indication: BIPOLAR DISORDER
     Dates: start: 20060301
  2. ABILIFY [Suspect]
     Dates: start: 20060801
  3. DEPAKOTE [Concomitant]
  4. LEXAPRO [Concomitant]
  5. AVALIDE [Concomitant]
  6. TOPROL-XL [Concomitant]
  7. XANAX [Concomitant]
  8. LIPITOR [Concomitant]
  9. NORVASC [Concomitant]
  10. CENTRUM SILVER [Concomitant]
  11. ZINC [Concomitant]
  12. SELENIUM SULFIDE [Concomitant]
  13. LEVAQUIN [Concomitant]

REACTIONS (6)
  - DECREASED APPETITE [None]
  - NASOPHARYNGITIS [None]
  - NAUSEA [None]
  - PHARYNGOLARYNGEAL PAIN [None]
  - STOMACH DISCOMFORT [None]
  - WEIGHT DECREASED [None]
